FAERS Safety Report 5880510-0 (Version None)
Quarter: 2008Q3

REPORT INFORMATION
  Report Type: 
  Country: None (occurrence: None)
  Receive Date: 20080912
  Receipt Date: 20080606
  Transmission Date: 20090109
  Serious: No
  Sender: FDA-Public Use
  Company Number: US-ABBOTT-08P-163-0441227-00

PATIENT
  Sex: Female
  Weight: 54.48 kg

DRUGS (3)
  1. HUMIRA [Suspect]
     Indication: PSORIASIS
     Route: 058
     Dates: start: 20071201, end: 20080301
  2. HUMIRA [Suspect]
     Route: 058
     Dates: start: 20080301, end: 20080401
  3. HUMIRA [Suspect]
     Route: 058
     Dates: start: 20080401

REACTIONS (4)
  - ERYTHEMA [None]
  - HERPES ZOSTER [None]
  - PSORIASIS [None]
  - SWELLING FACE [None]
